FAERS Safety Report 9323359 (Version 1)
Quarter: 2013Q2

REPORT INFORMATION
  Report Type: Spontaneous
  Country: JP (occurrence: JP)
  Receive Date: 20130603
  Receipt Date: 20130603
  Transmission Date: 20140414
  Serious: Yes (Other)
  Sender: FDA-Public Use
  Company Number: JP-009507513-1305JPN014994

PATIENT
  Sex: 0

DRUGS (1)
  1. REMERON [Suspect]
     Dosage: 3 DF, QD BEFORE RETIRING
     Route: 048

REACTIONS (1)
  - Coma [Not Recovered/Not Resolved]
